FAERS Safety Report 6262874-1 (Version None)
Quarter: 2009Q3

REPORT INFORMATION
  Report Type: 
  Country: None (occurrence: None)
  Receive Date: 20090709
  Receipt Date: 20090629
  Transmission Date: 20100115
  Serious: Yes (Life-Threatening)
  Sender: FDA-Public Use
  Company Number: EC-BAXTER-2009BH011188

PATIENT
  Age: 75 Year
  Sex: Female

DRUGS (6)
  1. LACTATED RINGER'S [Suspect]
     Indication: HYPERTENSION
     Route: 042
     Dates: start: 20090612, end: 20090612
  2. AMPICILLIN [Concomitant]
     Indication: INFECTION
     Route: 042
     Dates: start: 20090612
  3. METOCLOPRAMIDE [Concomitant]
     Indication: VOMITING
     Route: 042
     Dates: start: 20090612
  4. GENTAMICIN [Concomitant]
     Indication: INFECTION
     Route: 042
     Dates: start: 20090612
  5. RANITIDINE [Concomitant]
     Indication: DRUG USE FOR UNKNOWN INDICATION
     Route: 065
     Dates: start: 20090612
  6. ACETAMINOPHEN [Concomitant]
     Indication: DRUG USE FOR UNKNOWN INDICATION
     Route: 065

REACTIONS (1)
  - CHILLS [None]
